FAERS Safety Report 4351528-4 (Version None)
Quarter: 2004Q2

REPORT INFORMATION
  Report Type: 
  Country: None (occurrence: None)
  Receive Date: 20040503
  Receipt Date: 20031209
  Transmission Date: 20050107
  Serious: Yes (Hospitalization)
  Sender: FDA-Public Use
  Company Number: 200311474JP

PATIENT
  Age: 53 Year
  Sex: Female
  Weight: 47 kg

DRUGS (4)
  1. ARAVA [Suspect]
     Indication: RHEUMATOID ARTHRITIS
     Route: 048
     Dates: start: 20031022, end: 20031204
  2. AZULFIDINE [Concomitant]
     Indication: RHEUMATOID ARTHRITIS
     Route: 048
     Dates: end: 20031021
  3. LOXONIN [Concomitant]
     Indication: PAIN
  4. LINOLOSAL [Concomitant]
     Indication: ARTHRALGIA
     Dosage: DOSE: 2-4
     Route: 042
     Dates: start: 20031006, end: 20031017

REACTIONS (11)
  - ARTHRALGIA [None]
  - CONDITION AGGRAVATED [None]
  - FLUSHING [None]
  - GASTRIC ULCER HAEMORRHAGE [None]
  - GASTRITIS HAEMORRHAGIC [None]
  - HAEMATEMESIS [None]
  - HELICOBACTER INFECTION [None]
  - HYPERTENSION [None]
  - NAUSEA [None]
  - PALPITATIONS [None]
  - RHEUMATOID ARTHRITIS [None]
